FAERS Safety Report 22678528 (Version 5)
Quarter: 2023Q4

REPORT INFORMATION
  Report Type: Spontaneous
  Country: US (occurrence: US)
  Receive Date: 20230706
  Receipt Date: 20231027
  Transmission Date: 20240110
  Serious: Yes (Other)
  Sender: FDA-Public Use
  Company Number: US-PFIZER INC-202300237586

PATIENT
  Age: 73 Year
  Sex: Female
  Weight: 65.77 kg

DRUGS (2)
  1. IBRANCE [Suspect]
     Active Substance: PALBOCICLIB
     Indication: Breast cancer metastatic
     Dosage: 21 DAYS ON AND 7 DAYS OFF
  2. IBRANCE [Suspect]
     Active Substance: PALBOCICLIB
     Dosage: TAKE ONE TAB DAILY, ONE WEEK ON, FOLLOWED BY ONE WEEK OFF

REACTIONS (12)
  - Weight increased [Unknown]
  - Peripheral swelling [Not Recovered/Not Resolved]
  - Dry skin [Unknown]
  - Erythema [Unknown]
  - Fall [Unknown]
  - Oedema peripheral [Unknown]
  - Pain in extremity [Unknown]
  - Skin exfoliation [Unknown]
  - Blood potassium decreased [Unknown]
  - Cognitive disorder [Unknown]
  - Off label use [Unknown]
  - Product use issue [Unknown]
